FAERS Safety Report 17877050 (Version 1)
Quarter: 2020Q2

REPORT INFORMATION
  Report Type: Spontaneous
  Country: ES (occurrence: ES)
  Receive Date: 20200609
  Receipt Date: 20200609
  Transmission Date: 20200714
  Serious: Yes (Hospitalization, Disabling)
  Sender: FDA-Public Use
  Company Number: ES-ELI_LILLY_AND_COMPANY-ES202006000825

PATIENT
  Age: 83 Year
  Sex: Male
  Weight: 94 kg

DRUGS (1)
  1. FORSTEO 250UG/ML [Suspect]
     Active Substance: TERIPARATIDE
     Indication: PERIPROSTHETIC FRACTURE
     Dosage: 20 UG, DAILY
     Route: 058
     Dates: start: 20200507, end: 20200510

REACTIONS (4)
  - Off label use [Unknown]
  - Cholestasis [Recovering/Resolving]
  - Polyarthritis [Recovered/Resolved]
  - Diarrhoea [Recovered/Resolved]

NARRATIVE: CASE EVENT DATE: 20200509
